FAERS Safety Report 6986885-3 (Version None)
Quarter: 2010Q3

REPORT INFORMATION
  Report Type: 
  Country: None (occurrence: None)
  Receive Date: 20100915
  Receipt Date: 20090813
  Transmission Date: 20110219
  Serious: No
  Sender: FDA-Public Use
  Company Number: US-WYE-H10581909

PATIENT
  Sex: Female

DRUGS (3)
  1. PRISTIQ [Suspect]
     Indication: DEPRESSION
     Route: 048
     Dates: start: 20080801, end: 20090808
  2. PRISTIQ [Suspect]
     Route: 048
     Dates: start: 20090809, end: 20090811
  3. PRISTIQ [Suspect]
     Route: 048
     Dates: start: 20090812

REACTIONS (4)
  - DIZZINESS [None]
  - DRUG WITHDRAWAL SYNDROME [None]
  - FATIGUE [None]
  - PRURITUS [None]
